FAERS Safety Report 7756220-1 (Version None)
Quarter: 2011Q3

REPORT INFORMATION
  Report Type: 
  Country: None (occurrence: None)
  Receive Date: 20110916
  Receipt Date: 20110912
  Transmission Date: 20111222
  Serious: Yes (Death, Hospitalization, Other)
  Sender: FDA-Public Use
  Company Number: FR-B.I. PHARMACEUTICALS,INC./RIDGEFIELD-2011-FF-00283FF

PATIENT
  Sex: Male
  Weight: 82 kg

DRUGS (1)
  1. PRADAXA [Suspect]
     Indication: HIP ARTHROPLASTY
     Dosage: 150 MG
     Route: 048
     Dates: start: 20100930, end: 20101105

REACTIONS (3)
  - PANCREATIC CARCINOMA [None]
  - PULMONARY EMBOLISM [None]
  - JAUNDICE [None]
